FAERS Safety Report 4406283-6 (Version None)
Quarter: 2004Q3

REPORT INFORMATION
  Report Type: 
  Country: None (occurrence: None)
  Receive Date: 20040723
  Receipt Date: 20030606
  Transmission Date: 20050211
  Serious: No
  Sender: FDA-Public Use
  Company Number: US-GLAXOSMITHKLINE-A0411249A

PATIENT
  Age: 71 Year
  Sex: Female

DRUGS (4)
  1. AVANDIA [Suspect]
     Dosage: 8MG PER DAY
     Route: 048
     Dates: start: 20020601
  2. UNKNOWN BLOOD PRESSURE PILL [Concomitant]
  3. HEART MEDICATION [Concomitant]
  4. UNSPECIFIED ANTI-DIABETIC [Concomitant]

REACTIONS (2)
  - DIZZINESS [None]
  - FALL [None]
